FAERS Safety Report 25844750 (Version 1)
Quarter: 2025Q3

REPORT INFORMATION
  Report Type: Spontaneous
  Country: CA (occurrence: CA)
  Receive Date: 20250925
  Receipt Date: 20250925
  Transmission Date: 20251020
  Serious: Yes (Death, Hospitalization, Disabling)
  Sender: ROCHE
  Company Number: CA-ROCHE-10000392662

PATIENT
  Age: 43 Year
  Sex: Female

DRUGS (8)
  1. ACTEMRA [Suspect]
     Active Substance: TOCILIZUMAB
     Indication: Rheumatoid arthritis
     Route: 065
  2. NAPROXEN [Suspect]
     Active Substance: NAPROXEN
     Indication: Product used for unknown indication
     Route: 065
  3. NAPROXEN [Suspect]
     Active Substance: NAPROXEN
     Route: 065
  4. NAPROXEN [Suspect]
     Active Substance: NAPROXEN
     Route: 005
  5. NAPROXEN [Suspect]
     Active Substance: NAPROXEN
     Route: 065
  6. NAPROXEN [Suspect]
     Active Substance: NAPROXEN
     Route: 005
  7. RITUXIMAB [Suspect]
     Active Substance: RITUXIMAB
     Indication: Rheumatoid arthritis
     Route: 043
  8. RITUXIMAB [Suspect]
     Active Substance: RITUXIMAB
     Route: 058

REACTIONS (27)
  - Abdominal pain upper [Fatal]
  - Blepharospasm [Fatal]
  - Drug ineffective [Fatal]
  - Drug intolerance [Fatal]
  - Epilepsy [Fatal]
  - Hypoaesthesia [Fatal]
  - Gastrooesophageal reflux disease [Fatal]
  - Pain [Fatal]
  - Off label use [Fatal]
  - Paraesthesia [Fatal]
  - Product use in unapproved indication [Fatal]
  - Rash [Fatal]
  - Red blood cell sedimentation rate increased [Fatal]
  - Respiratory disorder [Fatal]
  - Rheumatic fever [Fatal]
  - Rheumatoid arthritis [Fatal]
  - Rheumatoid factor positive [Fatal]
  - Sleep disorder [Fatal]
  - Sleep disorder due to a general medical condition [Fatal]
  - Stomatitis [Fatal]
  - Swelling [Fatal]
  - Swollen joint count increased [Fatal]
  - Synovitis [Fatal]
  - Taste disorder [Fatal]
  - Vomiting [Fatal]
  - Memory impairment [Fatal]
  - Migraine [Fatal]
